FAERS Safety Report 5880903-1 (Version None)
Quarter: 2008Q3

REPORT INFORMATION
  Report Type: 
  Country: None (occurrence: None)
  Receive Date: 20080912
  Receipt Date: 20080606
  Transmission Date: 20090109
  Serious: No
  Sender: FDA-Public Use
  Company Number: US-ABBOTT-08P-163-0457098-00

PATIENT
  Sex: Male
  Weight: 56.75 kg

DRUGS (3)
  1. HUMIRA [Suspect]
     Indication: RHEUMATOID ARTHRITIS
     Dosage: 1 PEN
     Route: 050
     Dates: start: 20070101
  2. HUMIRA [Suspect]
     Dosage: 1 PEN
     Route: 050
     Dates: start: 20080101
  3. UNKNOWN PAIN PILLS [Concomitant]
     Indication: PAIN
     Route: 048

REACTIONS (2)
  - PAIN [None]
  - RHEUMATOID ARTHRITIS [None]
